FAERS Safety Report 4605618-9 (Version None)
Quarter: 2005Q1

REPORT INFORMATION
  Report Type: 
  Country: None (occurrence: None)
  Receive Date: 20050310
  Receipt Date: 20041122
  Transmission Date: 20050727
  Serious: No
  Sender: FDA-Public Use
  Company Number: US-BRISTOL-MYERS SQUIBB COMPANY-12779831

PATIENT
  Age: 32 Year
  Sex: Female
  Weight: 63 kg

DRUGS (1)
  1. VAGISTAT-1 [Suspect]
     Indication: VAGINAL MYCOSIS
     Route: 067
     Dates: start: 20041116, end: 20041116

REACTIONS (5)
  - ABDOMINAL PAIN [None]
  - HYPERSENSITIVITY [None]
  - NAUSEA [None]
  - PAIN [None]
  - VOMITING [None]
